FAERS Safety Report 6046583-X (Version None)
Quarter: 2009Q1

REPORT INFORMATION
  Report Type: 
  Country: None (occurrence: None)
  Receive Date: 20090122
  Receipt Date: 20090113
  Transmission Date: 20090719
  Serious: Yes (Other)
  Sender: FDA-Public Use
  Company Number: PHHY2008DE21980

PATIENT
  Sex: Female

DRUGS (11)
  1. ACLASTA [Suspect]
     Indication: OSTEOPOROSIS
     Dosage: 5 MG, ONCE/SINGLE
     Route: 042
     Dates: start: 20080111, end: 20090111
  2. ACLASTA [Interacting]
     Indication: OSTEOPOROTIC FRACTURE
  3. ARAVA [Interacting]
     Indication: RHEUMATOID ARTHRITIS
     Dosage: 20 MG/DAY
     Route: 048
     Dates: start: 20070214, end: 20080918
  4. GABRILEN [Concomitant]
     Indication: POLYARTHRITIS
     Dosage: 100 MG/DAY
     Route: 048
     Dates: start: 20070319, end: 20080918
  5. DACORTIN [Concomitant]
     Indication: POLYARTHRITIS
     Dosage: 5 MG/DAY
     Route: 048
     Dates: start: 19850101
  6. VALORON N [Concomitant]
     Indication: POLYARTHRITIS
     Dosage: 200 MG/DAY
     Route: 048
     Dates: start: 20050201
  7. TOPAMAX [Concomitant]
     Indication: PROPHYLAXIS
     Dosage: 150 MG/DAY
     Route: 048
     Dates: start: 20050201
  8. TRIAMTEREN COMP [Concomitant]
     Dosage: UNK
     Dates: start: 20080112
  9. SIMVASTATIN [Concomitant]
     Dosage: 40 MG/DAY
     Dates: start: 20050201
  10. METOHEXAL [Concomitant]
     Dosage: 23.75 MG/DAY
     Dates: start: 20050201
  11. IDEOS [Concomitant]

REACTIONS (8)
  - BLOOD CALCIUM DECREASED [None]
  - BLOOD CREATININE INCREASED [None]
  - BLOOD UREA INCREASED [None]
  - BLOOD URIC ACID INCREASED [None]
  - DISEASE PROGRESSION [None]
  - DRUG INTERACTION [None]
  - GLOMERULAR FILTRATION RATE DECREASED [None]
  - RENAL FAILURE [None]
